FAERS Safety Report 5444353-4 (Version None)
Quarter: 2007Q3

REPORT INFORMATION
  Report Type: 
  Country: None (occurrence: None)
  Receive Date: 20070906
  Receipt Date: 20070830
  Transmission Date: 20080115
  Serious: Yes (Hospitalization)
  Sender: FDA-Public Use
  Company Number: HQWYE954431AUG07

PATIENT
  Sex: Male

DRUGS (11)
  1. CORDARONE [Suspect]
     Dosage: 200 MG (DOSE AND FREQUENCY UNKNOWN)
     Route: 048
     Dates: end: 20070728
  2. GLIBENESE [Concomitant]
     Dosage: UNKNOWN
     Route: 048
  3. KARDEGIC [Concomitant]
     Dosage: UNKNOWN
     Route: 048
  4. PLAVIX [Concomitant]
     Dosage: UNKNOWN
     Route: 048
  5. KAYEXALATE [Concomitant]
  6. TRIATEC [Concomitant]
     Dosage: UNKNOWN
     Route: 048
  7. ADANCOR [Concomitant]
     Dosage: UNKNOWN
     Route: 048
  8. BUFLOMEDIL [Concomitant]
     Dosage: UNKNOWN
     Route: 048
  9. MOPRAL [Concomitant]
     Dosage: UNKNOWN
     Route: 048
  10. INDAPAMIDE [Suspect]
     Dosage: UNKNOWN
     Route: 048
     Dates: start: 20070401, end: 20070727
  11. PERMIXON [Concomitant]
     Dosage: UNKNOWN
     Route: 048

REACTIONS (2)
  - HYPOKALAEMIA [None]
  - TORSADE DE POINTES [None]
